FAERS Safety Report 23640497 (Version 3)
Quarter: 2024Q2

REPORT INFORMATION
  Report Type: Spontaneous
  Country: US (occurrence: US)
  Receive Date: 20240318
  Receipt Date: 20240429
  Transmission Date: 20240715
  Serious: Yes (Hospitalization)
  Sender: FDA-Public Use
  Company Number: US-JNJFOC-20240337258

PATIENT
  Sex: Male

DRUGS (7)
  1. UPTRAVI [Suspect]
     Active Substance: SELEXIPAG
     Indication: Product used for unknown indication
     Route: 048
  2. UPTRAVI [Suspect]
     Active Substance: SELEXIPAG
     Route: 048
  3. UPTRAVI [Suspect]
     Active Substance: SELEXIPAG
     Route: 048
  4. AMBRISENTAN [Suspect]
     Active Substance: AMBRISENTAN
     Indication: Pulmonary hypertension
     Route: 065
  5. AMBRISENTAN [Suspect]
     Active Substance: AMBRISENTAN
     Route: 065
     Dates: start: 20230323
  6. AMBRISENTAN [Suspect]
     Active Substance: AMBRISENTAN
     Route: 065
  7. TADALAFIL [Concomitant]
     Active Substance: TADALAFIL

REACTIONS (5)
  - Pneumonia [Unknown]
  - Diarrhoea [Unknown]
  - Fatigue [Unknown]
  - Pain in jaw [Unknown]
  - Weight decreased [Unknown]

NARRATIVE: CASE EVENT DATE: 20231229
